FAERS Safety Report 6861964-X (Version None)
Quarter: 2010Q3

REPORT INFORMATION
  Report Type: 
  Country: None (occurrence: None)
  Receive Date: 20100721
  Receipt Date: 20100706
  Transmission Date: 20110219
  Serious: Yes (Hospitalization, Other)
  Sender: FDA-Public Use
  Company Number: US-BAYER-201020485NA

PATIENT
  Age: 42 Year
  Sex: Female
  Weight: 76 kg

DRUGS (9)
  1. YASMIN [Suspect]
     Indication: CONTRACEPTION
     Route: 048
     Dates: start: 20050717, end: 20070901
  2. YAZ [Suspect]
     Indication: CONTRACEPTION
     Route: 048
     Dates: start: 20061020, end: 20090501
  3. PLAQUENIL [Concomitant]
     Indication: RHEUMATOID ARTHRITIS
     Dates: start: 20071001, end: 20090301
  4. PLAQUENIL [Concomitant]
  5. MOBIC [Concomitant]
     Indication: RHEUMATOID ARTHRITIS
     Dates: start: 20060101, end: 20090101
  6. ADIPEX [Concomitant]
     Indication: WEIGHT DECREASED
     Dates: start: 20070101, end: 20080101
  7. PROTONIX [Concomitant]
     Indication: ABDOMINAL DISCOMFORT
     Dates: start: 20090417, end: 20091001
  8. VICODIN [Concomitant]
  9. PLAVIX [Concomitant]
     Indication: MYOCARDIAL INFARCTION

REACTIONS (15)
  - ABDOMINAL PAIN [None]
  - ABDOMINAL PAIN UPPER [None]
  - ABDOMINAL TENDERNESS [None]
  - ACUTE MYOCARDIAL INFARCTION [None]
  - BACK PAIN [None]
  - BILIARY COLIC [None]
  - CHEST DISCOMFORT [None]
  - CHOLECYSTITIS [None]
  - CHOLELITHIASIS [None]
  - CONSTIPATION [None]
  - DIARRHOEA [None]
  - FATIGUE [None]
  - GASTRITIS [None]
  - MURPHY'S SIGN POSITIVE [None]
  - NAUSEA [None]
